FAERS Safety Report 7047636-X (Version None)
Quarter: 2010Q4

REPORT INFORMATION
  Report Type: 
  Country: None (occurrence: None)
  Receive Date: 20101015
  Receipt Date: 20101007
  Transmission Date: 20110411
  Serious: Yes (Hospitalization)
  Sender: FDA-Public Use
  Company Number: FR-JNJFOC-20101003217

PATIENT
  Sex: Female

DRUGS (6)
  1. RISPERDAL [Suspect]
     Indication: BIPOLAR DISORDER
     Route: 048
     Dates: start: 20100608, end: 20100629
  2. TEGRETOL [Suspect]
     Indication: BIPOLAR DISORDER
     Route: 048
  3. TEGRETOL [Suspect]
     Route: 048
  4. AMOXICILLIN [Concomitant]
     Indication: PYREXIA
     Dosage: 3 TABLETS
     Route: 048
     Dates: start: 20100623, end: 20100628
  5. PARACETAMOL [Concomitant]
     Indication: PYREXIA
     Dosage: 3 TABLETS
     Route: 048
     Dates: start: 20100621
  6. ADVIL [Concomitant]
     Indication: PYREXIA
     Route: 048
     Dates: start: 20100623, end: 20100624

REACTIONS (5)
  - CYTOLYTIC HEPATITIS [None]
  - DRUG RASH WITH EOSINOPHILIA AND SYSTEMIC SYMPTOMS [None]
  - PYREXIA [None]
  - RASH ERYTHEMATOUS [None]
  - TONSILLITIS [None]
